FAERS Safety Report 6475592-1 (Version None)
Quarter: 2009Q4

REPORT INFORMATION
  Report Type: 
  Country: None (occurrence: None)
  Receive Date: 20091204
  Receipt Date: 20091125
  Transmission Date: 20100525
  Serious: Yes (Death)
  Sender: FDA-Public Use
  Company Number: NL-MERCK-0912NLD00001

PATIENT
  Age: 65 Year
  Sex: Male

DRUGS (4)
  1. PRIMAXIN [Suspect]
     Indication: MYCOBACTERIUM CHELONEI INFECTION
     Route: 041
  2. CLARITHROMYCIN [Concomitant]
     Indication: MYCOBACTERIUM CHELONEI INFECTION
     Route: 048
  3. LINEZOLID [Concomitant]
     Indication: MYCOBACTERIUM CHELONEI INFECTION
     Route: 048
  4. CIPROFLOXACIN [Concomitant]
     Indication: MYCOBACTERIUM CHELONEI INFECTION
     Route: 048

REACTIONS (2)
  - DEATH [None]
  - NO THERAPEUTIC RESPONSE [None]
